FAERS Safety Report 5663294-0 (Version None)
Quarter: 2008Q1

REPORT INFORMATION
  Report Type: 
  Country: None (occurrence: None)
  Receive Date: 20080313
  Receipt Date: 20080227
  Transmission Date: 20080703
  Serious: Yes (Hospitalization)
  Sender: FDA-Public Use
  Company Number: US-ROCHE-545673

PATIENT
  Age: 79 Year
  Sex: Female
  Weight: 53 kg

DRUGS (2)
  1. CAPECITABINE [Suspect]
     Route: 065
     Dates: start: 20070508
  2. BLINDED BEVACIZUMAB [Suspect]
     Dosage: DOSE INTERRUPTED
     Route: 042
     Dates: start: 20070508

REACTIONS (1)
  - MUCOSAL INFLAMMATION [None]
